FAERS Safety Report 5867132-2 (Version None)
Quarter: 2008Q3

REPORT INFORMATION
  Report Type: 
  Country: None (occurrence: None)
  Receive Date: 20080902
  Receipt Date: 20080828
  Transmission Date: 20090109
  Serious: Yes (Hospitalization)
  Sender: FDA-Public Use
  Company Number: B0535301A

PATIENT
  Age: 36 Year
  Sex: Male

DRUGS (3)
  1. TALAVIR [Suspect]
     Indication: HERPES ZOSTER
     Dosage: 1000MG PER DAY
     Route: 048
     Dates: start: 20080714, end: 20080716
  2. DAPAROX [Concomitant]
     Dosage: 20MG PER DAY
     Route: 048
  3. RIVOTRIL [Concomitant]
     Dosage: .5MG PER DAY
     Route: 048

REACTIONS (4)
  - EYELID OEDEMA [None]
  - LOCALISED OEDEMA [None]
  - SOMNOLENCE [None]
  - TONGUE OEDEMA [None]
